FAERS Safety Report 9660520 (Version 1)
Quarter: 2013Q4

REPORT INFORMATION
  Report Type: Spontaneous
  Country: FR (occurrence: FR)
  Receive Date: 20131031
  Receipt Date: 20131031
  Transmission Date: 20140711
  Serious: Yes (Hospitalization, Other)
  Sender: FDA-Public Use
  Company Number: FR-009507513-1310FRA011334

PATIENT
  Age: 58 Year
  Sex: Male

DRUGS (10)
  1. EMEND [Suspect]
     Indication: PROPHYLAXIS OF NAUSEA AND VOMITING
     Dosage: 125 MG, ONCE
     Route: 048
     Dates: start: 20130911, end: 20130911
  2. OXALIPLATIN [Suspect]
     Indication: ADENOCARCINOMA
     Dosage: UNK
     Route: 042
     Dates: start: 20130828, end: 20130828
  3. OXALIPLATIN [Suspect]
     Dosage: 170 MG, UNK
     Route: 042
     Dates: start: 20130911, end: 20130911
  4. ZOPHREN (ONDANSETRON HYDROCHLORIDE) [Suspect]
     Indication: PROPHYLAXIS OF NAUSEA AND VOMITING
     Dosage: 8 MG, ONCE
     Route: 048
     Dates: start: 20130911, end: 20130911
  5. CORTANCYL [Suspect]
     Indication: PROPHYLAXIS OF NAUSEA AND VOMITING
     Dosage: 80 MG, ONCE
     Route: 048
     Dates: start: 20130911, end: 20130911
  6. AVASTIN (BEVACIZUMAB) [Suspect]
     Indication: ADENOCARCINOMA
     Dosage: 430 MG, UNK
     Route: 042
     Dates: start: 20130828, end: 20130828
  7. AVASTIN (BEVACIZUMAB) [Suspect]
     Dosage: 430 MG, UNK
     Route: 042
     Dates: start: 20130911, end: 20130911
  8. JANUVIA [Concomitant]
     Dosage: 100 MG, QD
  9. PRAVASTATIN SODIUM [Concomitant]
     Dosage: 40 MG, QD
  10. AMAREL [Concomitant]
     Dosage: 1 MG, QD

REACTIONS (2)
  - Anaphylactic shock [Recovered/Resolved]
  - Rash erythematous [Recovered/Resolved]
